FAERS Safety Report 7444515-0 (Version None)
Quarter: 2011Q2

REPORT INFORMATION
  Report Type: 
  Country: None (occurrence: None)
  Receive Date: 20110419
  Receipt Date: 20110408
  Transmission Date: 20111010
  Serious: Yes (Death, Hospitalization)
  Sender: FDA-Public Use
  Company Number: 115444

PATIENT
  Age: 16 Year

DRUGS (6)
  1. FUKUOKA K [Concomitant]
  2. ETOPOSIDE [Suspect]
     Indication: HODGKIN'S DISEASE
  3. KANEKO T [Concomitant]
  4. ADRIAMYCIN PFS [Suspect]
     Indication: HODGKIN'S DISEASE
  5. AKIYAMA M [Concomitant]
  6. PROGRESSIVE MULTIFOCAL LEUKOENCEPHALOPATHY [Concomitant]

REACTIONS (4)
  - MULTI-ORGAN FAILURE [None]
  - NO THERAPEUTIC RESPONSE [None]
  - PANCYTOPENIA [None]
  - LEUKOENCEPHALOPATHY [None]
